FAERS Safety Report 17581880 (Version 2)
Quarter: 2020Q3

REPORT INFORMATION
  Report Type: Report from Study
  Country: US (occurrence: US)
  Receive Date: 20200325
  Receipt Date: 20200828
  Transmission Date: 20201102
  Serious: Yes (Hospitalization, Other)
  Sender: FDA-Public Use
  Company Number: US-GILEAD-2020-0456576

PATIENT
  Age: 18 Year
  Sex: Male

DRUGS (14)
  1. CREON [Concomitant]
     Active Substance: PANCRELIPASE AMYLASE\PANCRELIPASE LIPASE\PANCRELIPASE PROTEASE
  2. METOCLOPRAMIDE. [Concomitant]
     Active Substance: METOCLOPRAMIDE
  3. ONFI [Concomitant]
     Active Substance: CLOBAZAM
  4. FLUTICASONE. [Concomitant]
     Active Substance: FLUTICASONE
  5. FELBAMATE. [Concomitant]
     Active Substance: FELBAMATE
  6. NUTRINE FORMULA [Concomitant]
  7. HUMALOG [Concomitant]
     Active Substance: INSULIN LISPRO
  8. LANTUS [Concomitant]
     Active Substance: INSULIN GLARGINE
  9. PREVACID [Concomitant]
     Active Substance: LANSOPRAZOLE
  10. AZTREONAM LYSINE [Suspect]
     Active Substance: AZTREONAM LYSINE
     Indication: CYSTIC FIBROSIS
     Dosage: 75 MG, TID, EVERY OTHER MONTH
     Route: 055
     Dates: start: 20190328
  11. PHENOBARBITAL. [Concomitant]
     Active Substance: PHENOBARBITAL
  12. MIRALAX [Concomitant]
     Active Substance: POLYETHYLENE GLYCOL 3350
  13. VITAMIN D NOS [Concomitant]
     Active Substance: VITAMIN D NOS
  14. PULMOZYME [Concomitant]
     Active Substance: DORNASE ALFA

REACTIONS (2)
  - Cough [Unknown]
  - Gastrointestinal tube insertion [Unknown]
